FAERS Safety Report 25598557 (Version 1)
Quarter: 2025Q3

REPORT INFORMATION
  Report Type: Spontaneous
  Country: CA (occurrence: CA)
  Receive Date: 20250723
  Receipt Date: 20250723
  Transmission Date: 20251021
  Serious: Yes (Death)
  Sender: BAUSCH AND LOMB
  Company Number: CA-BAUSCH-BH-2025-015344

PATIENT
  Age: 55 Year
  Sex: Male

DRUGS (1)
  1. RIFAXIMIN [Suspect]
     Active Substance: RIFAXIMIN
     Indication: Hepatic encephalopathy
     Route: 048

REACTIONS (1)
  - Death [Fatal]
